FAERS Safety Report 5759071-2 (Version None)
Quarter: 2008Q2

REPORT INFORMATION
  Report Type: 
  Country: None (occurrence: None)
  Receive Date: 20080604
  Receipt Date: 20080528
  Transmission Date: 20081010
  Serious: Yes (Other)
  Sender: FDA-Public Use
  Company Number: PHEH2008US03095

PATIENT
  Sex: Male

DRUGS (2)
  1. AREDIA [Suspect]
     Dosage: UNK
     Dates: start: 19960101
  2. ZOMETA [Suspect]
     Dosage: UNK
     Dates: end: 20050201

REACTIONS (5)
  - BONE DISORDER [None]
  - GINGIVAL DISORDER [None]
  - IMPAIRED HEALING [None]
  - OSTEONECROSIS [None]
  - TOOTH EXTRACTION [None]
